FAERS Safety Report 5233571-6 (Version None)
Quarter: 2007Q1

REPORT INFORMATION
  Report Type: 
  Country: None (occurrence: None)
  Receive Date: 20061208
  Receipt Date: 20060302
  Transmission Date: 20070707
  Serious: Yes (Other)
  Sender: FDA-Public Use
  Company Number: 2006UW03630

PATIENT
  Age: 57 Year
  Sex: Female
  Weight: 73.935 kg

DRUGS (6)
  1. CRESTOR [Suspect]
     Indication: BLOOD CHOLESTEROL INCREASED
     Dosage: 10 MG DAILY PO
     Route: 048
     Dates: start: 20060301
  2. CARDIZEM [Concomitant]
  3. AMERON [Concomitant]
  4. HORMONE PILL [Concomitant]
  5. NITROGLYCERIN [Concomitant]
  6. DIOVAN [Concomitant]

REACTIONS (4)
  - DYSPNOEA [None]
  - FEELING ABNORMAL [None]
  - HYPERHIDROSIS [None]
  - POLLAKIURIA [None]
